FAERS Safety Report 9702009 (Version 1)
Quarter: 2013Q4

REPORT INFORMATION
  Report Type: Spontaneous
  Country: GB (occurrence: None)
  Receive Date: 20131120
  Receipt Date: 20131120
  Transmission Date: 20140711
  Serious: Yes (Disabling, Other)
  Sender: FDA-Public Use
  Company Number: 2013AP009643

PATIENT
  Age: 54 Year
  Sex: Female

DRUGS (7)
  1. ALENDRONATE (ALENDRONATE SODIUM) [Suspect]
     Indication: OSTEOPENIA
     Dosage: 70 MG; UNKNOWN; PO;QW
     Route: 048
     Dates: start: 20130110, end: 20130124
  2. AMITRIPTYLINE (AMITRIPTYLINE) [Concomitant]
  3. CALCICHEW D3 (LEKOVIT CA) [Concomitant]
  4. CITALOPRAM (CITALOPRAM) [Concomitant]
  5. OMEPRAZOLE (OMEPRAZOLE) [Concomitant]
  6. SERETIDE (SERETIDE) [Concomitant]
  7. VENTOLIN /00139501/ (SALBUTAMOL) [Concomitant]

REACTIONS (5)
  - Depression [None]
  - Terminal insomnia [None]
  - Pruritus [None]
  - Nightmare [None]
  - Sleep disorder [None]
